FAERS Safety Report 5470344-3 (Version None)
Quarter: 2007Q3

REPORT INFORMATION
  Report Type: 
  Country: None (occurrence: None)
  Receive Date: 20070925
  Receipt Date: 20070913
  Transmission Date: 20080115
  Serious: Yes (Death)
  Sender: FDA-Public Use
  Company Number: 2007AL003876

PATIENT
  Age: 82 Year

DRUGS (6)
  1. MELOXICAM [Suspect]
     Indication: PAIN
     Dosage: 7.5 MG; QD; PO
     Route: 048
     Dates: start: 20070303, end: 20070801
  2. DIGOXIN [Concomitant]
  3. OMEPRAZOLE [Concomitant]
  4. VITAMIN D [Concomitant]
  5. CO-CODAMOL [Concomitant]
  6. FOLIC ACID [Concomitant]

REACTIONS (5)
  - ARTERIOSCLEROSIS [None]
  - ASPIRATION [None]
  - CORONARY ARTERY DISEASE [None]
  - INTESTINAL ISCHAEMIA [None]
  - PERICARDITIS [None]
